FAERS Safety Report 8370902-2 (Version None)
Quarter: 2012Q2

REPORT INFORMATION
  Report Type: 
  Country: None (occurrence: None)
  Receive Date: 20120518
  Receipt Date: 20111123
  Transmission Date: 20120825
  Serious: No
  Sender: FDA-Public Use
  Company Number: US-ASTRAZENECA-2011SE73994

PATIENT

DRUGS (1)
  1. PRILOSEC OTC [Suspect]
     Indication: GASTRIC ULCER
     Route: 048
     Dates: start: 20111123, end: 20111123

REACTIONS (3)
  - ABDOMINAL PAIN UPPER [None]
  - ABDOMINAL DISCOMFORT [None]
  - INAPPROPRIATE SCHEDULE OF DRUG ADMINISTRATION [None]
